FAERS Safety Report 8528608-2 (Version None)
Quarter: 2012Q3

REPORT INFORMATION
  Report Type: 
  Country: None (occurrence: None)
  Receive Date: 20120723
  Receipt Date: 20120713
  Transmission Date: 20120928
  Serious: No
  Sender: FDA-Public Use
  Company Number: US-BIOGENIDEC-2010BI015878

PATIENT
  Sex: Female

DRUGS (1)
  1. TYSABRI [Suspect]
     Indication: MULTIPLE SCLEROSIS
     Route: 042
     Dates: start: 20091211

REACTIONS (29)
  - NERVE INJURY [None]
  - PSYCHOMOTOR HYPERACTIVITY [None]
  - DRUG EFFECT DECREASED [None]
  - FALL [None]
  - ARTHRITIS [None]
  - EXERCISE TOLERANCE DECREASED [None]
  - INTERVERTEBRAL DISC DISPLACEMENT [None]
  - HEADACHE [None]
  - NECK PAIN [None]
  - BALANCE DISORDER [None]
  - BACK PAIN [None]
  - FEELING ABNORMAL [None]
  - SCIATICA [None]
  - MUSCLE SPASTICITY [None]
  - ROAD TRAFFIC ACCIDENT [None]
  - INTERVERTEBRAL DISC PROTRUSION [None]
  - APHASIA [None]
  - PAIN [None]
  - MULTIPLE SCLEROSIS RELAPSE [None]
  - MOBILITY DECREASED [None]
  - DISLOCATION OF VERTEBRA [None]
  - MEMORY IMPAIRMENT [None]
  - COGNITIVE DISORDER [None]
  - DYSSTASIA [None]
  - SPINAL DISORDER [None]
  - GAIT DISTURBANCE [None]
  - HYPOAESTHESIA [None]
  - PAIN IN EXTREMITY [None]
  - SPEECH DISORDER [None]
